FAERS Safety Report 22633796 (Version 1)
Quarter: 2023Q2

REPORT INFORMATION
  Report Type: Spontaneous
  Country: CA (occurrence: CA)
  Receive Date: 20230623
  Receipt Date: 20230623
  Transmission Date: 20230722
  Serious: Yes (Life-Threatening, Hospitalization)
  Sender: FDA-Public Use
  Company Number: None

PATIENT
  Age: 58 Year
  Sex: Female
  Weight: 99 kg

DRUGS (4)
  1. METHOTREXATE SODIUM [Suspect]
     Active Substance: METHOTREXATE SODIUM
     Indication: Product used for unknown indication
     Dosage: THERAPY DURATION: 304
     Route: 065
  2. BISOPROLOL [Concomitant]
     Active Substance: BISOPROLOL
  3. CYCLOPHOSPHAMIDE [Concomitant]
     Active Substance: CYCLOPHOSPHAMIDE
     Dosage: NOT SPECIFIED
  4. DISODIUM FUMARATE [Concomitant]
     Active Substance: DISODIUM FUMARATE

REACTIONS (7)
  - Arthralgia [Unknown]
  - Condition aggravated [Unknown]
  - Drug ineffective [Unknown]
  - Eye pain [Unknown]
  - Haemoptysis [Unknown]
  - Hypertension [Unknown]
  - Musculoskeletal stiffness [Unknown]
